FAERS Safety Report 6577179-9 (Version None)
Quarter: 2010Q1

REPORT INFORMATION
  Report Type: 
  Country: None (occurrence: None)
  Receive Date: 20100210
  Receipt Date: 20100129
  Transmission Date: 20100710
  Serious: Yes (Other)
  Sender: FDA-Public Use
  Company Number: PHHY2009GB19607

PATIENT
  Sex: Male

DRUGS (3)
  1. NILOTINIB [Suspect]
     Indication: CHRONIC MYELOID LEUKAEMIA
     Dosage: 400 MG/DAY
     Dates: start: 20090420
  2. NILOTINIB [Suspect]
     Dosage: 400 MG, BID
  3. CO-CODAMOL [Concomitant]
     Indication: ARTHRALGIA
     Dosage: 4-8 DF / DAY
     Route: 048

REACTIONS (2)
  - DIPLOPIA [None]
  - VITH NERVE PARALYSIS [None]
